FAERS Safety Report 6962092-5 (Version None)
Quarter: 2010Q3

REPORT INFORMATION
  Report Type: 
  Country: None (occurrence: None)
  Receive Date: 20100902
  Receipt Date: 20100825
  Transmission Date: 20110219
  Serious: No
  Sender: FDA-Public Use
  Company Number: FR-US-EMD SERONO, INC.-7015501

PATIENT
  Age: 30 Year
  Sex: Female

DRUGS (2)
  1. REBIF [Suspect]
     Indication: MULTIPLE SCLEROSIS
     Route: 058
  2. REBIF [Suspect]
     Route: 058

REACTIONS (3)
  - OPTIC NEURITIS [None]
  - RETINOPATHY [None]
  - VISUAL ACUITY REDUCED [None]
